FAERS Safety Report 8766367 (Version 1)
Quarter: 2012Q4

REPORT INFORMATION
  Report Type: 
  Country: US (occurrence: US)
  Receive Date: 20120904
  Receipt Date: 20120904
  Transmission Date: 20130627
  Serious: No
  Sender: FDA-Public Use
  Company Number: US-009507513-1208USA012019

PATIENT

DRUGS (2)
  1. IMPLANON [Suspect]
     Dosage: UNK
     Dates: start: 201205
  2. NEXPLANON [Suspect]
     Dosage: UNK
     Dates: start: 201205

REACTIONS (3)
  - Amenorrhoea [Unknown]
  - Medical device complication [Unknown]
  - Device difficult to use [Unknown]
